APPROVED DRUG PRODUCT: AVIANE-28
Active Ingredient: ETHINYL ESTRADIOL; LEVONORGESTREL
Strength: 0.02MG;0.1MG
Dosage Form/Route: TABLET;ORAL-28
Application: A075796 | Product #001 | TE Code: AB1
Applicant: DURAMED PHARMACEUTICALS INC SUB BARR LABORATORIES INC
Approved: Apr 30, 2001 | RLD: No | RS: No | Type: RX